FAERS Safety Report 7121457-1 (Version None)
Quarter: 2010Q4

REPORT INFORMATION
  Report Type: 
  Country: None (occurrence: None)
  Receive Date: 20101119
  Receipt Date: 20101119
  Transmission Date: 20110411
  Serious: Yes (Hospitalization)
  Sender: FDA-Public Use
  Company Number: None

PATIENT
  Sex: Male
  Weight: 101.3 kg

DRUGS (7)
  1. ONCASPAR [Suspect]
     Dosage: 5750 MG
  2. CYTARABINE [Suspect]
     Dosage: 70 MG
  3. DAUNORUBICIN HCL [Suspect]
     Dosage: 230 MG
  4. METHOTREXATE [Suspect]
     Dosage: 30 MG
  5. METHYLPREDNISOLONE [Suspect]
     Dosage: 3864 MG
  6. VINCRISTINE SULFATE [Suspect]
     Dosage: 8 MG
  7. ALLOPURINOL [Suspect]
     Dosage: 2400 MG

REACTIONS (2)
  - HEPATIC STEATOSIS [None]
  - PNEUMOTHORAX [None]
